FAERS Safety Report 18999968 (Version 2)
Quarter: 2021Q1

REPORT INFORMATION
  Report Type: Spontaneous
  Country: KR (occurrence: KR)
  Receive Date: 20210311
  Receipt Date: 20210318
  Transmission Date: 20210420
  Serious: Yes (Other)
  Sender: FDA-Public Use
  Company Number: KR-GILEAD-2021-0520111

PATIENT
  Sex: Male

DRUGS (2)
  1. VIREAD [Suspect]
     Active Substance: TENOFOVIR DISOPROXIL FUMARATE
     Indication: CHRONIC HEPATITIS B
     Dosage: 1 DOSAGE FORM, QD
     Route: 048
     Dates: start: 2017, end: 202011
  2. BEECOM [Concomitant]

REACTIONS (8)
  - Muscle atrophy [Unknown]
  - Spinal fracture [Unknown]
  - Ligament sprain [Unknown]
  - Bone disorder [Unknown]
  - Asthenia [Not Recovered/Not Resolved]
  - Osteoporosis [Unknown]
  - Weight decreased [Unknown]
  - Dysstasia [Unknown]

NARRATIVE: CASE EVENT DATE: 202005
